FAERS Safety Report 9781624 (Version 1)
Quarter: 2013Q4

REPORT INFORMATION
  Report Type: Report from Study
  Country: US (occurrence: US)
  Receive Date: 20131224
  Receipt Date: 20131224
  Transmission Date: 20140711
  Serious: No
  Sender: FDA-Public Use
  Company Number: US-009507513-1312USA010287

PATIENT
  Sex: Male

DRUGS (5)
  1. BOCEPREVIR [Suspect]
     Indication: CHRONIC HEPATITIS C
     Dosage: UNK
     Route: 065
     Dates: start: 20131030
  2. RIBAVIRIN [Suspect]
     Indication: CHRONIC HEPATITIS C
     Dosage: 1200MG/ QD
     Route: 065
     Dates: start: 20130925
  3. PEGASYS [Suspect]
     Indication: CHRONIC HEPATITIS C
     Dosage: 180 MICROGRAM, QW
     Route: 065
     Dates: start: 20130925
  4. XANAX [Concomitant]
  5. BENADRYL [Concomitant]

REACTIONS (7)
  - Blood count abnormal [Unknown]
  - Bronchitis [Unknown]
  - Vision blurred [Unknown]
  - Skin discolouration [Unknown]
  - Foot fracture [Unknown]
  - Cough [Unknown]
  - Chest discomfort [Unknown]
